FAERS Safety Report 7070188-5 (Version None)
Quarter: 2010Q4

REPORT INFORMATION
  Report Type: 
  Country: None (occurrence: None)
  Receive Date: 20101028
  Receipt Date: 20100927
  Transmission Date: 20110411
  Serious: No
  Sender: FDA-Public Use
  Company Number: US-WYE-H17583010

PATIENT
  Age: 10 Year
  Sex: Male
  Weight: 43.13 kg

DRUGS (5)
  1. ADVIL [Suspect]
     Indication: TENDONITIS
     Dosage: 1 LIQUI-GEL TWICE TO THREE TIMES PER DAY, RECOMMENDED BY A PHYSICIAN
     Route: 048
     Dates: start: 20100809, end: 20100901
  2. ADVIL [Suspect]
     Dosage: ONE OR TWO LIQUI-GELS PER DAY
     Route: 048
     Dates: start: 20100901, end: 20100914
  3. CEPHALEXIN [Suspect]
     Indication: INFECTION
     Dosage: UNKNOWN
     Route: 048
  4. MULTI-VITAMINS [Concomitant]
  5. CHILDREN'S MOTRIN [Suspect]
     Indication: PRODUCT USED FOR UNKNOWN INDICATION
     Dosage: 100MG, FREQUENCY UNKNOWN
     Route: 048

REACTIONS (2)
  - ABDOMINAL PAIN [None]
  - DIARRHOEA [None]
